FAERS Safety Report 12929913 (Version 1)
Quarter: 2016Q4

REPORT INFORMATION
  Report Type: Spontaneous
  Country: US (occurrence: US)
  Receive Date: 20161110
  Receipt Date: 20161110
  Transmission Date: 20170207
  Serious: Yes (Life-Threatening, Disabling)
  Sender: FDA-Public Use
  Company Number: None

PATIENT
  Age: 53 Year
  Sex: Female
  Weight: 67.05 kg

DRUGS (8)
  1. ABILIFY [Suspect]
     Active Substance: ARIPIPRAZOLE
     Indication: PRODUCT USED FOR UNKNOWN INDICATION
     Dates: start: 20160711, end: 20160910
  2. COQ10 [Concomitant]
     Active Substance: UBIDECARENONE
  3. PROBIOTIC [Concomitant]
     Active Substance: PROBIOTICS NOS
  4. FOLIC ACID. [Concomitant]
     Active Substance: FOLIC ACID
  5. BABY ASPIRIN [Concomitant]
     Active Substance: ASPIRIN
  6. OCCUVITE MULTI [Concomitant]
  7. ORGANIC FLAXSEED OIL [Concomitant]
  8. CHOLESTOFF ORIGINAL [Concomitant]

REACTIONS (1)
  - Blood prolactin abnormal [None]

NARRATIVE: CASE EVENT DATE: 20160910
